FAERS Safety Report 7324282-1 (Version None)
Quarter: 2011Q1

REPORT INFORMATION
  Report Type: 
  Country: None (occurrence: None)
  Receive Date: 20110301
  Receipt Date: 20110222
  Transmission Date: 20110831
  Serious: Yes (Other)
  Sender: FDA-Public Use
  Company Number: US-AMGEN-USASP2010009530

PATIENT
  Age: 61 Year
  Sex: Male

DRUGS (9)
  1. PROCRIT [Suspect]
     Indication: RENAL FAILURE CHRONIC
     Dosage: 10000 IU, 2 TIMES/WK
     Route: 058
     Dates: start: 20090101
  2. METOPROLOL [Concomitant]
     Dosage: UNK
  3. HYDRALAZINE [Concomitant]
     Dosage: UNK
  4. LISINOPRIL [Concomitant]
     Dosage: UNK
  5. GLIPIZIDE [Concomitant]
     Dosage: UNK
  6. OMEPRAZOLE [Concomitant]
     Dosage: UNK
  7. PROCRIT [Suspect]
     Dosage: 10000 IU, 3 TIMES/WK
  8. IRON [Concomitant]
  9. VITAMIN A [Concomitant]
     Dosage: UNK

REACTIONS (1)
  - APLASIA PURE RED CELL [None]
